FAERS Safety Report 11088788 (Version 1)
Quarter: 2015Q2

REPORT INFORMATION
  Report Type: Report from Study
  Country: AU (occurrence: AU)
  Receive Date: 20150504
  Receipt Date: 20150504
  Transmission Date: 20150821
  Serious: Yes (Hospitalization)
  Sender: FDA-Public Use
  Company Number: AU-MYLANLABS-2015M1014927

PATIENT

DRUGS (5)
  1. ATENOLOL. [Suspect]
     Active Substance: ATENOLOL
     Route: 048
  2. METFORMIN [Suspect]
     Active Substance: METFORMIN HYDROCHLORIDE
     Route: 048
  3. VERAPAMIL [Suspect]
     Active Substance: VERAPAMIL HYDROCHLORIDE
     Route: 048
  4. FOSINOPRIL [Suspect]
     Active Substance: FOSINOPRIL
     Route: 048
  5. GLICLAZIDE [Suspect]
     Active Substance: GLICLAZIDE
     Route: 048

REACTIONS (7)
  - Acidosis [Unknown]
  - Intentional overdose [Unknown]
  - Bradycardia [Unknown]
  - Hyperlactacidaemia [Unknown]
  - Hypotension [Unknown]
  - Renal failure [Unknown]
  - Hypoglycaemia [Unknown]
